FAERS Safety Report 21602986 (Version 1)
Quarter: 2022Q4

REPORT INFORMATION
  Report Type: Report from Study
  Country: US (occurrence: US)
  Receive Date: 20221116
  Receipt Date: 20221116
  Transmission Date: 20230112
  Serious: Yes (Other)
  Sender: FDA-Public Use
  Company Number: US-ABBVIE-4195512

PATIENT
  Age: 63 Year
  Sex: Male

DRUGS (18)
  1. HUMIRA [Suspect]
     Active Substance: ADALIMUMAB
     Indication: Product used for unknown indication
     Route: 058
     Dates: end: 20201110
  2. ATROPINE\DIPHENOXYLATE [Concomitant]
     Active Substance: ATROPINE\DIPHENOXYLATE
     Indication: Product used for unknown indication
     Dosage: TIME INTERVAL: 0.33333333 DAYS: TWO TABLET
  3. PENTASA [Concomitant]
     Active Substance: MESALAMINE
     Indication: Product used for unknown indication
     Dosage: STRENGTH 20000 MILLIGRAM
  4. cyanocobalami [Concomitant]
     Indication: Product used for unknown indication
     Dosage: DOSAGE: 1000 UG/MG
  5. CALCIUM\MAGNESIUM [Concomitant]
     Active Substance: CALCIUM\MAGNESIUM
     Indication: Product used for unknown indication
  6. FERROUS GLUCONATE [Concomitant]
     Active Substance: FERROUS GLUCONATE
     Indication: Product used for unknown indication
  7. LISINOPRIL [Concomitant]
     Active Substance: LISINOPRIL
     Indication: Product used for unknown indication
  8. RIFAXIMIN [Concomitant]
     Active Substance: RIFAXIMIN
     Indication: Product used for unknown indication
     Dosage: STRENGTH: 550 MILLIGRAM
  9. ROSUVASTATIN CALCIUM [Concomitant]
     Active Substance: ROSUVASTATIN CALCIUM
     Indication: Product used for unknown indication
     Dosage: STRENGTH: 10 MILLIGRAM
  10. COPPER GLUCONATE [Concomitant]
     Active Substance: COPPER GLUCONATE
     Indication: Product used for unknown indication
  11. METOPROLOL SUCCINATE [Concomitant]
     Active Substance: METOPROLOL SUCCINATE
     Indication: Product used for unknown indication
     Dosage: STRENGTH 25 MILLIGRAM
  12. LOPERAMIDE [Concomitant]
     Active Substance: LOPERAMIDE
     Indication: Product used for unknown indication
     Dosage: TIME INTERVAL: 0.33333333 DAYS
  13. DALTEPARIN [Concomitant]
     Active Substance: DALTEPARIN
     Indication: Product used for unknown indication
     Dosage: DOSAGE: 5000 UNIT
  14. ASPIRIN [Concomitant]
     Active Substance: ASPIRIN
     Indication: Product used for unknown indication
     Dosage: STRENGTH 81 MILLIGRAM
  15. BUDESONIDE [Concomitant]
     Active Substance: BUDESONIDE
     Indication: Product used for unknown indication
     Dosage: 3MG QD
  16. ONDANSETRON [Concomitant]
     Active Substance: ONDANSETRON
     Indication: Product used for unknown indication
     Dosage: AS NEEDED
  17. OPIUM [Concomitant]
     Active Substance: OPIUM
     Indication: Product used for unknown indication
     Dosage: DOSAGE: 10 MG/ML AS NEEDED
  18. ZINC SULFATE [Concomitant]
     Active Substance: ZINC SULFATE
     Indication: Product used for unknown indication
     Dosage: STRENGTH: 220 MILLIGRAM

REACTIONS (9)
  - Arterial tortuosity syndrome [Unknown]
  - Carotid artery stenosis [Unknown]
  - Coronary artery stenosis [Unknown]
  - Chest pain [Unknown]
  - Ejection fraction abnormal [Unknown]
  - Echocardiogram abnormal [Unknown]
  - Hyperhidrosis [Unknown]
  - Aphasia [Unknown]
  - Carotid arteriosclerosis [Unknown]

NARRATIVE: CASE EVENT DATE: 20201108
